FAERS Safety Report 9747507 (Version 1)
Quarter: 2013Q4

REPORT INFORMATION
  Report Type: Report from Study
  Country: US (occurrence: US)
  Receive Date: 20131212
  Receipt Date: 20131212
  Transmission Date: 20140711
  Serious: Yes (Hospitalization)
  Sender: FDA-Public Use
  Company Number: US-ROCHE-1316864

PATIENT
  Age: 49 Year
  Sex: Female
  Weight: 86.71 kg

DRUGS (1)
  1. XELODA [Suspect]
     Indication: COLON CANCER
     Dosage: 2 PILLS DAILY FOR 2 WEEKS, THEN NO MEDICATION FOR THE NEXT WEEK.
     Route: 065
     Dates: start: 201306

REACTIONS (7)
  - Malaise [Recovered/Resolved]
  - Nausea [Recovered/Resolved]
  - Pollakiuria [Recovered/Resolved]
  - Chromaturia [Recovered/Resolved]
  - Asthenia [Recovered/Resolved]
  - Pyrexia [Recovered/Resolved]
  - Blood electrolytes decreased [Recovered/Resolved]
